FAERS Safety Report 6110879-3 (Version None)
Quarter: 2009Q1

REPORT INFORMATION
  Report Type: 
  Country: None (occurrence: None)
  Receive Date: 20090311
  Receipt Date: 20090305
  Transmission Date: 20090719
  Serious: Yes (Hospitalization)
  Sender: FDA-Public Use
  Company Number: US-ASTRAZENECA-2009UW05938

PATIENT
  Age: 22775 Day
  Sex: Male

DRUGS (1)
  1. SEROQUEL [Suspect]
     Dosage: DAILY
     Route: 048
     Dates: end: 20080101

REACTIONS (2)
  - DIABETES MELLITUS [None]
  - LOSS OF CONSCIOUSNESS [None]
